FAERS Safety Report 15484883 (Version 1)
Quarter: 2018Q4

REPORT INFORMATION
  Report Type: Spontaneous
  Country: US (occurrence: US)
  Receive Date: 20181010
  Receipt Date: 20181010
  Transmission Date: 20190205
  Serious: No
  Sender: FDA-Public Use
  Company Number: US-ROCHE-2142799

PATIENT
  Sex: Male

DRUGS (1)
  1. ZELBORAF [Suspect]
     Active Substance: VEMURAFENIB
     Indication: MALIGNANT MELANOMA
     Dosage: CURRENT
     Route: 048
     Dates: start: 20180529

REACTIONS (4)
  - Rash macular [Unknown]
  - Visual impairment [Unknown]
  - Photosensitivity reaction [Unknown]
  - Fatigue [Unknown]
